FAERS Safety Report 24188637 (Version 1)
Quarter: 2024Q3

REPORT INFORMATION
  Report Type: Spontaneous
  Country: US (occurrence: US)
  Receive Date: 20240808
  Receipt Date: 20240808
  Transmission Date: 20241016
  Serious: No
  Sender: OTSUKA
  Company Number: US-OTSUKA-2024_007153

PATIENT
  Age: 22 Year
  Sex: Female

DRUGS (2)
  1. ABILIFY MAINTENA [Suspect]
     Active Substance: ARIPIPRAZOLE
     Indication: Product used for unknown indication
     Dosage: 300 MG (FIRST INJECTION)
     Route: 065
     Dates: start: 202104
  2. ABILIFY MAINTENA [Suspect]
     Active Substance: ARIPIPRAZOLE
     Dosage: 300 MG (SECOND INJECTION)
     Route: 065
     Dates: start: 202105

REACTIONS (1)
  - Eye movement disorder [Unknown]

NARRATIVE: CASE EVENT DATE: 20210501
